FAERS Safety Report 5089834-0 (Version None)
Quarter: 2006Q3

REPORT INFORMATION
  Report Type: 
  Country: None (occurrence: None)
  Receive Date: 20060823
  Receipt Date: 20060808
  Transmission Date: 20061208
  Serious: Yes (Other)
  Sender: FDA-Public Use
  Company Number: 2006-DE-04170GD

PATIENT
  Age: 30 Year
  Sex: Female

DRUGS (6)
  1. SERTRALINE [Suspect]
  2. TRAZODONE HCL [Suspect]
  3. LINEZOLID [Suspect]
     Indication: ENTEROCOCCAL INFECTION
  4. LINEZOLID [Suspect]
     Indication: PANCREATIC PSEUDOCYST
  5. FENTANYL [Suspect]
  6. BETA BLOCKER (BETA BLOCKING AGENTS) [Suspect]

REACTIONS (3)
  - BLOOD PRESSURE INCREASED [None]
  - DRUG WITHDRAWAL SYNDROME [None]
  - SEROTONIN SYNDROME [None]
